FAERS Safety Report 24541716 (Version 2)
Quarter: 2025Q3

REPORT INFORMATION
  Report Type: Spontaneous
  Country: EU (occurrence: EU)
  Receive Date: 20241023
  Receipt Date: 20250809
  Transmission Date: 20251021
  Serious: Yes (Hospitalization, Other)
  Sender: ALEXION PHARMACEUTICALS
  Company Number: EU-ASTRAZENECA-202410GLO006898SK

PATIENT
  Age: 56 Year
  Sex: Male

DRUGS (7)
  1. QUETIAPINE [Suspect]
     Active Substance: QUETIAPINE
     Indication: Bipolar disorder
     Dosage: 2 DOSAGE FORM, QD
     Dates: start: 20060624, end: 2022
  2. QUETIAPINE [Suspect]
     Active Substance: QUETIAPINE
  3. VALPROATE SODIUM [Suspect]
     Active Substance: VALPROATE SODIUM
     Indication: Bipolar disorder
     Dosage: 500 MILLIGRAM, QD
     Dates: start: 20060624, end: 2022
  4. VALPROATE SODIUM [Suspect]
     Active Substance: VALPROATE SODIUM
  5. ATORVASTATIN CALCIUM [Concomitant]
     Active Substance: ATORVASTATIN CALCIUM
     Route: 065
  6. Lithium carbonate taisho [Concomitant]
     Route: 065
  7. RISPERIDONE [Concomitant]
     Active Substance: RISPERIDONE
     Route: 065

REACTIONS (5)
  - Pancreatitis [Recovered/Resolved]
  - Pancreatitis acute [Unknown]
  - Weight increased [Unknown]
  - Adverse drug reaction [Unknown]
  - Blood glucose increased [Recovered/Resolved]

NARRATIVE: CASE EVENT DATE: 20100301
